FAERS Safety Report 18671098 (Version 2)
Quarter: 2021Q1

REPORT INFORMATION
  Report Type: Spontaneous
  Country: US (occurrence: US)
  Receive Date: 20201228
  Receipt Date: 20210115
  Transmission Date: 20210419
  Serious: No
  Sender: FDA-Public Use
  Company Number: US-PFIZER INC-2020509134

PATIENT
  Age: 55 Year
  Sex: Female
  Weight: 58.06 kg

DRUGS (10)
  1. NIFEDIPINE. [Suspect]
     Active Substance: NIFEDIPINE
     Indication: HYPERTENSION
     Dosage: 60 MG, DAILY
  2. ASPIRIN [ACETYLSALICYLIC ACID] [Suspect]
     Active Substance: ASPIRIN
     Dosage: 81 MG (ONCE IN WEEK OR EVERY OTHER DAY )
  3. FOLIC ACID. [Suspect]
     Active Substance: FOLIC ACID
     Indication: THALASSAEMIA MINOR
     Dosage: 1 MG, DAILY
  4. VITAMIN C [Suspect]
     Active Substance: ASCORBIC ACID
     Dosage: UNK UNK, DAILY (1000 DAILY)
  5. ZINC OXIDE. [Suspect]
     Active Substance: ZINC OXIDE
     Dosage: 50 MG, DAILY
  6. VALSARTAN. [Suspect]
     Active Substance: VALSARTAN
     Indication: HYPERTENSION
     Dosage: 80 MG, DAILY (ONE MORNING ONE IN THE EVENING)
  7. PAROXETINE. [Suspect]
     Active Substance: PAROXETINE
     Dosage: 10 MG, DAILY
  8. TOZINAMERAN. [Suspect]
     Active Substance: TOZINAMERAN
     Indication: COVID-19 IMMUNISATION
     Dosage: SINGLE DOSE
     Dates: start: 20201218, end: 20201218
  9. LEVOTHYROXINE SODIUM. [Suspect]
     Active Substance: LEVOTHYROXINE SODIUM
     Dosage: 50 MG, DAILY
  10. VITAMIN B12 [Suspect]
     Active Substance: CYANOCOBALAMIN
     Dosage: 1000 MG, DAILY

REACTIONS (3)
  - Myalgia [Recovering/Resolving]
  - Headache [Recovered/Resolved]
  - Arthralgia [Recovering/Resolving]

NARRATIVE: CASE EVENT DATE: 20201218
